FAERS Safety Report 13353211 (Version 1)
Quarter: 2017Q1

REPORT INFORMATION
  Report Type: Spontaneous
  Country: CA (occurrence: CA)
  Receive Date: 20170321
  Receipt Date: 20170321
  Transmission Date: 20170429
  Serious: Yes (Other)
  Sender: FDA-Public Use
  Company Number: CA-TEVA-751338ACC

PATIENT
  Age: 73 Year
  Sex: Female

DRUGS (5)
  1. TIMOPTIC-XE [Concomitant]
     Active Substance: TIMOLOL MALEATE
  2. ZOLEDRONIC ACID INJECTION A [Suspect]
     Active Substance: ZOLEDRONIC ACID
     Indication: OSTEOPOROSIS
     Dosage: .274 ML DAILY;
     Route: 042
  3. BISOPROLOL [Concomitant]
     Active Substance: BISOPROLOL
  4. ROSUVASTATIN. [Concomitant]
     Active Substance: ROSUVASTATIN
  5. LATANOPROST. [Concomitant]
     Active Substance: LATANOPROST

REACTIONS (1)
  - Serum procollagen type I N-terminal propeptide increased [Unknown]
